FAERS Safety Report 19705556 (Version 1)
Quarter: 2021Q3

REPORT INFORMATION
  Report Type: Spontaneous
  Country: US (occurrence: US)
  Receive Date: 20210816
  Receipt Date: 20210816
  Transmission Date: 20211014
  Serious: Yes (Other)
  Sender: FDA-Public Use
  Company Number: US-SUN PHARMACEUTICAL INDUSTRIES LTD-2021R1-307454

PATIENT
  Sex: Male
  Weight: 87.09 kg

DRUGS (3)
  1. METOPROLOL. [Suspect]
     Active Substance: METOPROLOL
     Indication: MYOCARDITIS
     Dosage: ONE HALF OD 25 MG TABLET
     Route: 065
     Dates: start: 2021
  2. METOPROLOL. [Suspect]
     Active Substance: METOPROLOL
     Dosage: ONE HALF OD 25 MG TABLET
     Route: 065
     Dates: start: 2021
  3. METOPROLOL. [Suspect]
     Active Substance: METOPROLOL
     Dosage: 25 MILLIGRAM
     Route: 065
     Dates: start: 2021

REACTIONS (2)
  - Palpitations [Unknown]
  - Loss of consciousness [Unknown]

NARRATIVE: CASE EVENT DATE: 2021
